FAERS Safety Report 4640031-X (Version None)
Quarter: 2005Q2

REPORT INFORMATION
  Report Type: 
  Country: None (occurrence: None)
  Receive Date: 20050415
  Receipt Date: 20050415
  Transmission Date: 20051028
  Serious: Yes (Hospitalization)
  Sender: FDA-Public Use
  Company Number: None

PATIENT
  Age: 50 Year
  Sex: Female
  Weight: 113.1 kg

DRUGS (12)
  1. PACLITAXEL [Suspect]
     Indication: BREAST CANCER METASTATIC
     Dosage: 90 MCG/ AQ M EVERY 3 WEEKS INTRAVENOUS
     Route: 042
     Dates: start: 20040404, end: 20040404
  2. PACLITAXEL [Suspect]
     Indication: METASTASES TO LIVER
     Dosage: 90 MCG/ AQ M EVERY 3 WEEKS INTRAVENOUS
     Route: 042
     Dates: start: 20040404, end: 20040404
  3. HERCEPTIN [Concomitant]
  4. GLUCOTROL XL [Concomitant]
  5. ACCUPRIL [Concomitant]
  6. CLARITIN [Concomitant]
  7. CLARITIN-D [Concomitant]
  8. COMBIVENT [Concomitant]
  9. SINGULAIR [Concomitant]
  10. FLONASE [Concomitant]
  11. ADVAIR DISKUS 100/50 [Concomitant]
  12. PRILOSEC [Concomitant]

REACTIONS (20)
  - BURNING SENSATION [None]
  - CHEILITIS [None]
  - DYSPHAGIA [None]
  - DYSURIA [None]
  - HEPATIC FUNCTION ABNORMAL [None]
  - HYPERSENSITIVITY [None]
  - INFLUENZA LIKE ILLNESS [None]
  - LIP EXFOLIATION [None]
  - METASTASIS [None]
  - MUCOSAL INFLAMMATION [None]
  - NAUSEA [None]
  - NEUTROPENIC SEPSIS [None]
  - ORAL MUCOSAL EXFOLIATION [None]
  - PAINFUL DEFAECATION [None]
  - PHARYNGOLARYNGEAL PAIN [None]
  - PYREXIA [None]
  - SPEECH DISORDER [None]
  - SWELLING FACE [None]
  - VAGINAL HAEMORRHAGE [None]
  - VOMITING [None]
